FAERS Safety Report 23269838 (Version 1)
Quarter: 2023Q4

REPORT INFORMATION
  Report Type: Report from Study
  Country: US (occurrence: US)
  Receive Date: 20231207
  Receipt Date: 20231207
  Transmission Date: 20240110
  Serious: Yes (Hospitalization, Other)
  Sender: FDA-Public Use
  Company Number: US-ABBVIE-5526417

PATIENT
  Sex: Female

DRUGS (1)
  1. SKYRIZI [Suspect]
     Active Substance: RISANKIZUMAB-RZAA
     Indication: Psoriasis
     Dosage: 150MG/ML?150 MG/ML INJECT 1 PEN UNDER THE SKIN AT WEEK 0, ?AND AFTER WEEK 4, THEN EVERY 12 WEEKS ...
     Route: 058
     Dates: start: 20231115

REACTIONS (2)
  - Biliary obstruction [Unknown]
  - Cholelithiasis [Unknown]

NARRATIVE: CASE EVENT DATE: 20230101
